FAERS Safety Report 10244242 (Version 2)
Quarter: 2014Q2

REPORT INFORMATION
  Report Type: Spontaneous
  Country: NL (occurrence: NL)
  Receive Date: 20140618
  Receipt Date: 20140618
  Transmission Date: 20141212
  Serious: Yes (Other)
  Sender: FDA-Public Use
  Company Number: NL-PFIZER INC-2013057553

PATIENT
  Age: 54 Year
  Sex: Male
  Weight: 78 kg

DRUGS (2)
  1. AMLODIPINE BESILATE [Suspect]
     Indication: HYPERTENSION
     Dosage: UNK
     Dates: start: 200803, end: 200811
  2. CORENITEC [Concomitant]
     Dosage: UNK
     Dates: start: 2006, end: 2010

REACTIONS (6)
  - Depressed level of consciousness [Recovered/Resolved]
  - Disturbance in attention [Recovered/Resolved]
  - Transient global amnesia [Recovered/Resolved with Sequelae]
  - Fatigue [Recovered/Resolved]
  - Depressed mood [Recovered/Resolved]
  - Apathy [Recovered/Resolved]
